FAERS Safety Report 5341166-9 (Version None)
Quarter: 2007Q2

REPORT INFORMATION
  Report Type: 
  Country: None (occurrence: None)
  Receive Date: 20070404
  Receipt Date: 20070126
  Transmission Date: 20071010
  Serious: No
  Sender: FDA-Public Use
  Company Number: US200701005380

PATIENT
  Sex: Male

DRUGS (1)
  1. ALIMTA [Suspect]
     Indication: NEOPLASM MALIGNANT

REACTIONS (3)
  - HOT FLUSH [None]
  - THROAT IRRITATION [None]
  - URTICARIA [None]
